FAERS Safety Report 10205097 (Version 1)
Quarter: 2014Q2

REPORT INFORMATION
  Report Type: Spontaneous
  Country: US (occurrence: US)
  Receive Date: 20140529
  Receipt Date: 20140529
  Transmission Date: 20141212
  Serious: No
  Sender: FDA-Public Use
  Company Number: US-PFIZER INC-2014143417

PATIENT
  Sex: Female

DRUGS (4)
  1. ENBREL [Suspect]
     Indication: RHEUMATOID ARTHRITIS
     Dosage: UNK UNK, QWK
     Dates: start: 2010, end: 201203
  2. XELJANZ [Suspect]
     Dosage: UNK
  3. HUMIRA [Suspect]
     Dosage: UNK
     Route: 065
  4. SIMPONI [Suspect]
     Dosage: UNK

REACTIONS (3)
  - Arthritis [Not Recovered/Not Resolved]
  - Malaise [Recovered/Resolved]
  - Drug effect incomplete [Unknown]
